FAERS Safety Report 7037337-6 (Version None)
Quarter: 2010Q4

REPORT INFORMATION
  Report Type: 
  Country: None (occurrence: None)
  Receive Date: 20101011
  Receipt Date: 20101007
  Transmission Date: 20110411
  Serious: Yes (Other)
  Sender: FDA-Public Use
  Company Number: RU-BAYER-201041412GPV

PATIENT
  Age: 39 Year
  Sex: Female

DRUGS (1)
  1. AVELOX [Suspect]
     Indication: PELVIC INFLAMMATORY DISEASE
     Dosage: TOTAL DAILY DOSE: 400 MG  UNIT DOSE: 400 MG
     Route: 048
     Dates: start: 20100916, end: 20100919

REACTIONS (3)
  - APNOEA [None]
  - CHEST PAIN [None]
  - TACHYCARDIA [None]
